FAERS Safety Report 5229042-3 (Version None)
Quarter: 2007Q1

REPORT INFORMATION
  Report Type: 
  Country: None (occurrence: None)
  Receive Date: 20061201
  Receipt Date: 20051215
  Transmission Date: 20070707
  Serious: Yes (Other)
  Sender: FDA-Public Use
  Company Number: 2005-135904-NL

PATIENT
  Age: 44 Year
  Sex: Female
  Weight: 113.4 kg

DRUGS (2)
  1. NUVARING [Suspect]
     Indication: MENSTRUATION IRREGULAR
     Dosage: VAGINAL
     Route: 067
     Dates: end: 20050101
  2. MULTIPLE MEDICATIONS (NOS) [Concomitant]

REACTIONS (1)
  - DEEP VEIN THROMBOSIS [None]
